FAERS Safety Report 21035696 (Version 1)
Quarter: 2022Q3

REPORT INFORMATION
  Report Type: Spontaneous
  Country: CA (occurrence: CA)
  Receive Date: 20220701
  Receipt Date: 20220701
  Transmission Date: 20221027
  Serious: Yes (Other)
  Sender: FDA-Public Use
  Company Number: CA-PFIZER INC-202200902083

PATIENT
  Age: 46 Year
  Sex: Male
  Weight: 117.5 kg

DRUGS (13)
  1. METHOTREXATE SODIUM [Suspect]
     Active Substance: METHOTREXATE SODIUM
     Indication: Ankylosing spondylitis
     Dosage: 1 DF, UNK DOSE, FREQ
     Route: 065
     Dates: start: 2014, end: 2016
  2. METHOTREXATE SODIUM [Suspect]
     Active Substance: METHOTREXATE SODIUM
     Indication: Oligoarthritis
     Dosage: 20 MG, Q WEEK
     Route: 048
     Dates: start: 202102
  3. ADALIMUMAB [Suspect]
     Active Substance: ADALIMUMAB
     Dosage: 40 MG, Q 2 WEEKS (STARTED )
     Route: 058
     Dates: start: 20140725
  4. ADALIMUMAB [Suspect]
     Active Substance: ADALIMUMAB
     Dosage: 40 MG, Q 2 WEEKS (RESTARTED ), (CLOSE TO 2 MONTHS )
     Route: 058
     Dates: start: 20150425
  5. ADALIMUMAB [Suspect]
     Active Substance: ADALIMUMAB
     Dosage: 40 MG Q 2 WEEKS (RESTART ), (CLOSE TO A MONTH),(FOLLOWING THE 3RD SUSPENSION )
     Route: 058
     Dates: start: 201801, end: 201804
  6. ADALIMUMAB [Suspect]
     Active Substance: ADALIMUMAB
     Dosage: 40 MG, Q 1 WEEK
     Route: 058
     Dates: start: 20190708
  7. ADALIMUMAB [Suspect]
     Active Substance: ADALIMUMAB
     Dosage: 40 MG, Q 2 WEEKS (ATTEMPT TO  GO BACK TO)
     Route: 058
     Dates: start: 202003
  8. ADALIMUMAB [Suspect]
     Active Substance: ADALIMUMAB
     Dosage: 40 MG, Q 1 WEEK(SINCE FIRST WEEK OF )
     Route: 058
     Dates: start: 202007
  9. INFLECTRA [Concomitant]
     Active Substance: INFLIXIMAB-DYYB
     Indication: Ankylosing spondylitis
     Dosage: 1 DF, UNK DOSE, FREQ
     Route: 042
  10. INFLECTRA [Concomitant]
     Active Substance: INFLIXIMAB-DYYB
     Dosage: 600 MG, INDUCTION SINCE MAINTAINING Q 8 WEEKS
     Route: 042
  11. HUMIRA [Concomitant]
     Active Substance: ADALIMUMAB
     Indication: Oligoarthritis
     Dosage: 40 MG, Q 1 WEEK
     Route: 058
     Dates: start: 2020
  12. PREDNISONE [Concomitant]
     Active Substance: PREDNISONE
     Indication: Oligoarthritis
     Dosage: UNK, WITH SHORT THERAPY
  13. SULFASALAZINE [Concomitant]
     Active Substance: SULFASALAZINE
     Dosage: 1 DF, UNK DOSE, FREQ
     Route: 065

REACTIONS (12)
  - Drug intolerance [Unknown]
  - Cholecystitis [Unknown]
  - Pneumonia [Unknown]
  - Condition aggravated [Recovered/Resolved]
  - Nausea [Unknown]
  - Loss of personal independence in daily activities [Recovering/Resolving]
  - Infection [Unknown]
  - Diarrhoea [Unknown]
  - Pain [Recovering/Resolving]
  - Asthenia [Recovering/Resolving]
  - Oligoarthritis [Unknown]
  - Myalgia [Unknown]

NARRATIVE: CASE EVENT DATE: 20140101
